FAERS Safety Report 5256064-9 (Version None)
Quarter: 2007Q1

REPORT INFORMATION
  Report Type: 
  Country: None (occurrence: None)
  Receive Date: 20070306
  Receipt Date: 20070301
  Transmission Date: 20070707
  Serious: Yes (Hospitalization)
  Sender: FDA-Public Use
  Company Number: 2007UW02429

PATIENT
  Age: 46 Year
  Sex: Female

DRUGS (4)
  1. SEROQUEL [Suspect]
     Indication: BIPOLAR DISORDER
     Route: 048
  2. TEGRETOL [Concomitant]
  3. ABILIFY [Concomitant]
  4. LAMICTAL [Concomitant]

REACTIONS (2)
  - COLONIC PSEUDO-OBSTRUCTION [None]
  - ORTHOSTATIC HYPERTENSION [None]
